FAERS Safety Report 6563157-2 (Version None)
Quarter: 2010Q1

REPORT INFORMATION
  Report Type: 
  Country: None (occurrence: None)
  Receive Date: 20100130
  Receipt Date: 20091209
  Transmission Date: 20100710
  Serious: No
  Sender: FDA-Public Use
  Company Number: US-ABBOTT-09P-163-0613693-00

PATIENT
  Sex: Female
  Weight: 68.1 kg

DRUGS (9)
  1. HUMIRA [Suspect]
     Indication: CROHN'S DISEASE
     Route: 058
     Dates: start: 20090101
  2. AVAPRO [Concomitant]
     Indication: DRUG USE FOR UNKNOWN INDICATION
  3. FLECAINIDE [Concomitant]
     Indication: DRUG USE FOR UNKNOWN INDICATION
  4. TORSEMIDE [Concomitant]
     Indication: DRUG USE FOR UNKNOWN INDICATION
  5. ATENEX [Concomitant]
     Indication: DRUG USE FOR UNKNOWN INDICATION
  6. POTASSIUM [Concomitant]
     Indication: DRUG USE FOR UNKNOWN INDICATION
  7. PROTONIX [Concomitant]
     Indication: DRUG USE FOR UNKNOWN INDICATION
  8. EVISTA [Concomitant]
     Indication: DRUG USE FOR UNKNOWN INDICATION
  9. ENTOCORT EC [Concomitant]
     Indication: DRUG USE FOR UNKNOWN INDICATION
     Dates: start: 20090401

REACTIONS (1)
  - ALOPECIA [None]
